FAERS Safety Report 9929305 (Version 2)
Quarter: 2014Q2

REPORT INFORMATION
  Report Type: Spontaneous
  Country: US (occurrence: US)
  Receive Date: 20140227
  Receipt Date: 20140530
  Transmission Date: 20141212
  Serious: Yes (Other)
  Sender: FDA-Public Use
  Company Number: US-ELI_LILLY_AND_COMPANY-US201402007620

PATIENT
  Age: 19 Year
  Sex: Female
  Weight: 67.6 kg

DRUGS (15)
  1. OLANZAPINE [Suspect]
     Indication: BIPOLAR DISORDER
     Dosage: 2.5 MG, BID
     Route: 048
     Dates: start: 20140220, end: 20140221
  2. STRATTERA [Concomitant]
  3. CLONIDINE [Concomitant]
  4. DEPAKOTE [Concomitant]
  5. LUNESTA [Concomitant]
  6. INTUNIV [Concomitant]
  7. LAMICTAL [Concomitant]
  8. MVI [Concomitant]
  9. TRILEPTAL [Concomitant]
  10. PHENOBARBITAL [Concomitant]
  11. LYRICA [Concomitant]
  12. RANITIDINE [Concomitant]
  13. BANZEL [Concomitant]
  14. ZOLOFT [Concomitant]
  15. TRAZODONE [Concomitant]

REACTIONS (1)
  - Generalised tonic-clonic seizure [Recovered/Resolved]
